FAERS Safety Report 16243337 (Version 3)
Quarter: 2019Q2

REPORT INFORMATION
  Report Type: Spontaneous
  Country: US (occurrence: US)
  Receive Date: 20190426
  Receipt Date: 20190503
  Transmission Date: 20190711
  Serious: Yes (Other)
  Sender: FDA-Public Use
  Company Number: US-PFIZER INC-2019172691

PATIENT
  Age: 71 Year
  Sex: Female
  Weight: 91 kg

DRUGS (11)
  1. LYRICA [Suspect]
     Active Substance: PREGABALIN
     Indication: POLYNEUROPATHY
     Dosage: 150 MG, 3X/DAY
     Route: 048
  2. OMEPRAZOLE. [Concomitant]
     Active Substance: OMEPRAZOLE
     Indication: GASTROOESOPHAGEAL REFLUX DISEASE
     Dosage: 20 MG, 1X/DAY (20MG CAPSULE IN THE MORNING, BY MOUTH)
     Route: 048
  3. CELEBREX [Concomitant]
     Active Substance: CELECOXIB
     Indication: ARTHRITIS
     Dosage: 200 MG, 1X/DAY
  4. TRAMADOL HCL [Concomitant]
     Active Substance: TRAMADOL HYDROCHLORIDE
     Indication: PAIN
  5. LYRICA [Suspect]
     Active Substance: PREGABALIN
     Dosage: 150 MG, UNK
  6. CITALOPRAM [Concomitant]
     Active Substance: CITALOPRAM HYDROBROMIDE
     Indication: DEPRESSION
     Dosage: 40 MG, 1X/DAY (ONCE AT NIGHT)
     Route: 048
  7. TRAMADOL HCL [Concomitant]
     Active Substance: TRAMADOL HYDROCHLORIDE
     Indication: NEURALGIA
     Dosage: 50 MG, AS NEEDED (ONE TO 2 TIMES DAILY)
  8. PREDNISONE. [Concomitant]
     Active Substance: PREDNISONE
     Indication: ARTHRITIS
     Dosage: 4 MG, UNK (4MG DOSE GOING FROM 6 TO 1 A DAY)
     Dates: start: 20190416
  9. PREDNISONE. [Concomitant]
     Active Substance: PREDNISONE
     Dosage: UNK (2 TABLETS FOR 5 DAYS, 1 TABLET FOR 5 DAYS, AND THEN 1/2 A TABLET TILL GONE)
  10. LEVOTHYROXINE. [Concomitant]
     Active Substance: LEVOTHYROXINE
     Indication: THYROID DISORDER
     Dosage: 25 UG, DAILY
  11. VOLTAREN [DICLOFENAC] [Concomitant]
     Active Substance: DICLOFENAC SODIUM
     Indication: ARTHRITIS
     Dosage: UNK, SPORADICALLY

REACTIONS (11)
  - Cough [Not Recovered/Not Resolved]
  - Tremor [Unknown]
  - Pulmonary congestion [Recovering/Resolving]
  - Hyperhidrosis [Unknown]
  - Malaise [Unknown]
  - Drug hypersensitivity [Recovering/Resolving]
  - Asthenia [Not Recovered/Not Resolved]
  - Vomiting [Unknown]
  - Drug dependence [Unknown]
  - Hypoaesthesia [Unknown]
  - Withdrawal syndrome [Unknown]

NARRATIVE: CASE EVENT DATE: 20190416
